FAERS Safety Report 18965037 (Version 1)
Quarter: 2021Q1

REPORT INFORMATION
  Report Type: Spontaneous
  Country: TW (occurrence: TW)
  Receive Date: 20210303
  Receipt Date: 20210303
  Transmission Date: 20210420
  Serious: Yes (Other)
  Sender: FDA-Public Use
  Company Number: NVSC2021TW045981

PATIENT
  Age: 41 Year
  Sex: Female

DRUGS (3)
  1. TEGRETOL XR [Suspect]
     Active Substance: CARBAMAZEPINE
     Indication: TOOTHACHE
     Dosage: UNK
     Route: 065
  2. IBUPROFEN. [Concomitant]
     Active Substance: IBUPROFEN
     Indication: TOOTHACHE
     Dosage: UNK
     Route: 065
  3. AMOXICILLIN. [Concomitant]
     Active Substance: AMOXICILLIN
     Indication: TOOTHACHE
     Dosage: UNK
     Route: 065

REACTIONS (10)
  - Skin discolouration [Unknown]
  - Urinary tract infection [Unknown]
  - Lip ulceration [Unknown]
  - Erythema multiforme [Unknown]
  - Mouth ulceration [Unknown]
  - Stevens-Johnson syndrome [Unknown]
  - Eye pain [Unknown]
  - Genital pain [Unknown]
  - Hypersensitivity [Unknown]
  - Oral pain [Unknown]
